FAERS Safety Report 19198246 (Version 1)
Quarter: 2021Q2

REPORT INFORMATION
  Report Type: Spontaneous
  Country: US (occurrence: US)
  Receive Date: 20210430
  Receipt Date: 20210430
  Transmission Date: 20210717
  Serious: Yes (Other)
  Sender: FDA-Public Use
  Company Number: US-BEH-2021130999

PATIENT
  Age: 59 Year
  Sex: Male

DRUGS (4)
  1. HIZENTRA [Suspect]
     Active Substance: HUMAN IMMUNOGLOBULIN G
     Dosage: 10 GRAM
     Route: 058
     Dates: start: 201608
  2. HIZENTRA [Suspect]
     Active Substance: HUMAN IMMUNOGLOBULIN G
     Dosage: UNK
     Route: 058
     Dates: start: 20210402
  3. HIZENTRA [Suspect]
     Active Substance: HUMAN IMMUNOGLOBULIN G
     Dosage: UNK
     Route: 058
     Dates: start: 20210416
  4. HIZENTRA [Suspect]
     Active Substance: HUMAN IMMUNOGLOBULIN G
     Dosage: UNK
     Route: 058
     Dates: start: 20210409

REACTIONS (15)
  - Neuropathy peripheral [Unknown]
  - Peripheral coldness [Unknown]
  - Chills [Unknown]
  - Ear congestion [Unknown]
  - Infusion site mass [Unknown]
  - Rash pruritic [Unknown]
  - Rash erythematous [Unknown]
  - Peripheral coldness [Unknown]
  - Erythema [Unknown]
  - Flushing [Unknown]
  - Tremor [Unknown]
  - Chills [Unknown]
  - Tinnitus [Unknown]
  - Recalled product administered [Unknown]
  - Hypersensitivity [Unknown]

NARRATIVE: CASE EVENT DATE: 20210402
